FAERS Safety Report 4612644-2 (Version None)
Quarter: 2005Q1

REPORT INFORMATION
  Report Type: 
  Country: None (occurrence: None)
  Receive Date: 20050316
  Receipt Date: 20050316
  Transmission Date: 20050727
  Serious: Yes (Hospitalization)
  Sender: FDA-Public Use
  Company Number: None

PATIENT
  Age: 59 Year
  Sex: Female

DRUGS (9)
  1. ATORVASTATIN [Suspect]
     Indication: HYPERCHOLESTEROLAEMIA
     Dosage: 40 MG QD ORAL
     Route: 048
  2. CLOPIDOGREL [Concomitant]
  3. SODIUM BICARB [Concomitant]
  4. AMLODIPINE [Concomitant]
  5. FOSINOPRIL [Concomitant]
  6. CLONIDINE [Concomitant]
  7. HYDROCHLOROTHIAZIDE [Concomitant]
  8. ATENOLOL [Concomitant]
  9. DONEPEZIL HCL [Concomitant]

REACTIONS (2)
  - GENERALISED OEDEMA [None]
  - RENAL FAILURE ACUTE [None]
